FAERS Safety Report 24576084 (Version 1)
Quarter: 2024Q4

REPORT INFORMATION
  Report Type: Spontaneous
  Country: US (occurrence: None)
  Receive Date: 20241102
  Receipt Date: 20241102
  Transmission Date: 20250115
  Serious: Yes (Other)
  Sender: Public
  Company Number: None

PATIENT
  Age: 73 Year
  Sex: Female

DRUGS (1)
  1. MONTELUKAST [Suspect]
     Active Substance: MONTELUKAST
     Indication: Asthma
     Dates: end: 20240601

REACTIONS (4)
  - Suicidal ideation [None]
  - Insomnia [None]
  - Anxiety [None]
  - Asthenia [None]

NARRATIVE: CASE EVENT DATE: 20240401
